FAERS Safety Report 6971086-5 (Version None)
Quarter: 2010Q3

REPORT INFORMATION
  Report Type: 
  Country: None (occurrence: None)
  Receive Date: 20100903
  Receipt Date: 20100826
  Transmission Date: 20110219
  Serious: Yes (Hospitalization)
  Sender: FDA-Public Use
  Company Number: 2010SP046067

PATIENT
  Age: 60 Year
  Sex: Male
  Weight: 70 kg

DRUGS (12)
  1. DEXAMETHASONE [Suspect]
     Indication: PRODUCT USED FOR UNKNOWN INDICATION
  2. UFTORAL (UFTORAL) [Suspect]
     Indication: RECTAL CANCER
     Dosage: PO
     Route: 048
     Dates: start: 20100816, end: 20100818
  3. ASPIRIN [Concomitant]
  4. ATORVASTATIN CALCIUM [Concomitant]
  5. BISOPROLOL [Concomitant]
  6. CLOPIDOGREL HYDROGEN [Concomitant]
  7. SULPHATE [Concomitant]
  8. DOMPERIDONE [Concomitant]
  9. DOTHIEPIN HYDROCHLORIDE [Concomitant]
  10. FOLINIC ACID [Concomitant]
  11. ISOSORBIDE MONONITRATE [Concomitant]
  12. RAMIPRIL [Concomitant]

REACTIONS (3)
  - HYPERGLYCAEMIA [None]
  - MYOCARDIAL ISCHAEMIA [None]
  - RECTAL CANCER [None]
